FAERS Safety Report 4356009-X (Version None)
Quarter: 2004Q2

REPORT INFORMATION
  Report Type: 
  Country: None (occurrence: None)
  Receive Date: 20040507
  Receipt Date: 20040507
  Transmission Date: 20050107
  Serious: Yes (Life-Threatening, Hospitalization)
  Sender: FDA-Public Use
  Company Number: None

PATIENT
  Age: 66 Year
  Sex: Male
  Weight: 75.3 kg

DRUGS (11)
  1. WARFARIN SODIUM [Suspect]
  2. GEMFIBROZIL [Concomitant]
  3. SIMVASTATIN [Concomitant]
  4. LEVOTHYROXINE [Concomitant]
  5. FENTANYL [Concomitant]
  6. GLYBURIDE [Concomitant]
  7. LISINOPRIL [Concomitant]
  8. METFORMIN HCL [Concomitant]
  9. FERROUS SULFATE TAB [Concomitant]
  10. RABEPRAZOLE SODIUM [Concomitant]
  11. METOPROLOL [Concomitant]

REACTIONS (2)
  - GASTROINTESTINAL HAEMORRHAGE [None]
  - INTERNATIONAL NORMALISED RATIO INCREASED [None]
